FAERS Safety Report 10055649 (Version 2)
Quarter: 2014Q2

REPORT INFORMATION
  Report Type: Spontaneous
  Country: DK (occurrence: DK)
  Receive Date: 20140403
  Receipt Date: 20140403
  Transmission Date: 20141212
  Serious: Yes (Death, Life-Threatening, Hospitalization, Other)
  Sender: FDA-Public Use
  Company Number: DK-ORION CORPORATION ORION PHARMA-14_00000768

PATIENT
  Age: 68 Year
  Sex: Male

DRUGS (36)
  1. SPIRON [Suspect]
     Indication: CARDIAC FAILURE
     Route: 065
     Dates: start: 20120627
  2. SPIRON [Suspect]
     Route: 065
     Dates: start: 20120717
  3. SPIRON [Suspect]
     Route: 065
     Dates: start: 20120831, end: 20130125
  4. WARFARIN [Suspect]
     Indication: ATRIAL FIBRILLATION
     Route: 065
     Dates: start: 20080403
  5. WARFARIN [Suspect]
     Route: 048
     Dates: start: 20120722
  6. MAREVAN [Suspect]
     Indication: ATRIAL FIBRILLATION
     Route: 048
     Dates: start: 20120706
  7. MAREVAN [Suspect]
     Route: 048
     Dates: start: 20120725, end: 20130320
  8. RAMIPRIL [Suspect]
     Indication: CARDIAC FAILURE
     Route: 048
     Dates: start: 20121029, end: 20130125
  9. RAMIPRIL [Suspect]
     Route: 049
     Dates: start: 20130221
  10. AMARYL [Concomitant]
     Indication: DIABETES MELLITUS
     Route: 065
     Dates: start: 20000814
  11. ASPIRIN [Concomitant]
     Indication: ACUTE MYOCARDIAL INFARCTION
     Route: 065
     Dates: start: 20000814, end: 20120620
  12. BURINEX [Concomitant]
     Indication: CARDIAC FAILURE
     Route: 048
     Dates: start: 20120917
  13. BYETTA [Concomitant]
     Indication: DIABETES MELLITUS
     Route: 058
     Dates: start: 20080221, end: 20130419
  14. CARVEDILOL [Concomitant]
     Indication: CARDIAC FAILURE
     Route: 048
     Dates: start: 20120708
  15. CARVEDILOL [Concomitant]
     Route: 065
     Dates: start: 20130125
  16. CITALOPRAM [Concomitant]
     Indication: DEPRESSION
     Route: 048
     Dates: start: 20130219, end: 20130408
  17. DIGOXIN [Concomitant]
     Indication: VENTRICULAR TACHYCARDIA
     Route: 065
     Dates: start: 20121115
  18. DIMITONE [Concomitant]
     Indication: MYOCARDIAL ISCHAEMIA
     Route: 065
     Dates: start: 20080405, end: 20120619
  19. FUROSEMIDE [Concomitant]
     Indication: CARDIAC FAILURE
     Route: 048
     Dates: start: 20120721, end: 20120806
  20. ISODUR [Concomitant]
     Indication: CARDIAC FAILURE
     Route: 048
     Dates: start: 20120210, end: 20120808
  21. ISODUR [Concomitant]
     Route: 048
     Dates: start: 20120809
  22. LASIX RETARD [Concomitant]
     Indication: CARDIAC FAILURE
     Route: 065
     Dates: start: 20080406, end: 20120614
  23. METFORMIN [Concomitant]
     Indication: DIABETES MELLITUS
     Route: 048
     Dates: start: 20040714
  24. METFORMIN [Concomitant]
     Route: 048
     Dates: start: 20120710
  25. NORVASC [Concomitant]
     Indication: HYPERTENSION
     Route: 065
     Dates: start: 20020527
  26. ODRIK [Concomitant]
     Indication: CARDIAC FAILURE
     Route: 048
     Dates: start: 20120724
  27. PANTOPRAZOLE [Concomitant]
     Indication: GASTRIC ULCER
     Route: 048
     Dates: start: 20120620
  28. PANTOPRAZOLE [Concomitant]
     Route: 048
     Dates: start: 20121025, end: 20130415
  29. PANTOPRAZOLE [Concomitant]
     Route: 048
     Dates: start: 20130416
  30. SELOZOK [Concomitant]
     Indication: CARDIAC FAILURE
     Route: 048
     Dates: start: 20120619
  31. SELOZOK [Concomitant]
     Route: 065
     Dates: start: 20120719
  32. SPIRONOLACTONE [Concomitant]
     Indication: CARDIAC FAILURE
     Route: 065
     Dates: start: 20120722, end: 20120830
  33. VENLAFAXINE [Concomitant]
     Indication: DEPRESSION
     Route: 048
     Dates: start: 20130409, end: 20130419
  34. ZARATOR [Concomitant]
     Indication: HYPERCHOLESTEROLAEMIA
     Route: 048
     Dates: start: 20030731
  35. ZARATOR [Concomitant]
     Route: 048
     Dates: start: 20120616, end: 20130419
  36. ZAROXOLYN [Concomitant]
     Indication: CARDIAC FAILURE
     Route: 065
     Dates: start: 20120725

REACTIONS (14)
  - Acute myocardial infarction [Fatal]
  - Cardiac failure [Recovering/Resolving]
  - Haemoglobin decreased [Unknown]
  - Renal failure [Not Recovered/Not Resolved]
  - Aortic valve stenosis [Recovered/Resolved]
  - Peripheral arterial occlusive disease [Unknown]
  - Atrial fibrillation [Unknown]
  - Coagulation factor increased [Unknown]
  - Delirium [Unknown]
  - Skin ulcer [Recovered/Resolved]
  - Infected skin ulcer [Recovered/Resolved]
  - Hyperkalaemia [Recovered/Resolved]
  - International normalised ratio increased [Recovered/Resolved]
  - Gastric ulcer [Unknown]
